FAERS Safety Report 16073530 (Version 2)
Quarter: 2019Q1

REPORT INFORMATION
  Report Type: Spontaneous
  Country: NO (occurrence: NO)
  Receive Date: 20190314
  Receipt Date: 20190320
  Transmission Date: 20190418
  Serious: Yes (Hospitalization, Other)
  Sender: FDA-Public Use
  Company Number: NO-JNJFOC-20190317543

PATIENT
  Age: 50 Year
  Sex: Female

DRUGS (5)
  1. MAGNESIUM [Concomitant]
     Active Substance: MAGNESIUM
     Route: 065
  2. XARELTO [Suspect]
     Active Substance: RIVAROXABAN
     Indication: ATRIAL FLUTTER
     Route: 048
     Dates: start: 20180906
  3. FURIX [Concomitant]
     Active Substance: FUROSEMIDE
     Route: 065
  4. CORDARON [Concomitant]
     Active Substance: AMIODARONE HYDROCHLORIDE
     Route: 065
  5. KALEORID [Concomitant]
     Active Substance: POTASSIUM CHLORIDE
     Route: 065

REACTIONS (9)
  - Cyclic vomiting syndrome [Unknown]
  - Anticoagulation drug level increased [Unknown]
  - Blood bilirubin increased [Unknown]
  - International normalised ratio increased [Unknown]
  - Blood luteinising hormone abnormal [Unknown]
  - Angioedema [Unknown]
  - Blood follicle stimulating hormone abnormal [Unknown]
  - C-reactive protein increased [Unknown]
  - Anticoagulation drug level increased [Unknown]

NARRATIVE: CASE EVENT DATE: 20190228
